FAERS Safety Report 6783155-3 (Version None)
Quarter: 2010Q2

REPORT INFORMATION
  Report Type: 
  Country: None (occurrence: None)
  Receive Date: 20100622
  Receipt Date: 20100610
  Transmission Date: 20101027
  Serious: Yes (Hospitalization)
  Sender: FDA-Public Use
  Company Number: US-PFIZER INC-2010072986

PATIENT
  Sex: Male

DRUGS (1)
  1. SUTENT [Suspect]
     Indication: METASTATIC RENAL CELL CARCINOMA
     Dosage: 50 MG, UNK
     Route: 048
     Dates: start: 20100513

REACTIONS (7)
  - APPLICATION SITE ULCER [None]
  - ARTHRALGIA [None]
  - BLISTER [None]
  - HYPERTENSION [None]
  - MEDICAL DEVICE COMPLICATION [None]
  - SKIN EXFOLIATION [None]
  - SWELLING [None]
